FAERS Safety Report 4912986-7 (Version None)
Quarter: 2006Q1

REPORT INFORMATION
  Report Type: 
  Country: None (occurrence: None)
  Receive Date: 20060210
  Receipt Date: 20060207
  Transmission Date: 20060701
  Serious: Yes (Hospitalization)
  Sender: FDA-Public Use
  Company Number: 060012

PATIENT
  Age: 24 Month
  Sex: Female

DRUGS (1)
  1. MIRALAX [Suspect]
     Indication: CONSTIPATION
     Dosage: 1/4 CAPFUL, DAILY, PO
     Route: 048
     Dates: start: 20060101, end: 20060207

REACTIONS (5)
  - ANION GAP INCREASED [None]
  - BLOOD SODIUM DECREASED [None]
  - DEHYDRATION [None]
  - HYPERPHOSPHATAEMIA [None]
  - PCO2 DECREASED [None]
